FAERS Safety Report 12941377 (Version 1)
Quarter: 2016Q4

REPORT INFORMATION
  Report Type: Spontaneous
  Country: GB (occurrence: GB)
  Receive Date: 20161115
  Receipt Date: 20161115
  Transmission Date: 20170207
  Serious: Yes (Life-Threatening, Hospitalization)
  Sender: FDA-Public Use
  Company Number: GB-BAYER-2016-217785

PATIENT
  Age: 44 Year
  Sex: Male

DRUGS (6)
  1. ATORVASTATIN [Suspect]
     Active Substance: ATORVASTATIN
     Dosage: 20 MG, QD
     Route: 048
  2. CLARITHROMYCIN. [Suspect]
     Active Substance: CLARITHROMYCIN
     Indication: BLISTER RUPTURE
     Dosage: 500 MG,TOTAL
     Route: 048
     Dates: start: 20161103, end: 20161104
  3. METFORMIN [Suspect]
     Active Substance: METFORMIN HYDROCHLORIDE
     Dosage: 1000 MG, BID
     Route: 048
  4. LORATADINE. [Suspect]
     Active Substance: LORATADINE
     Indication: BLISTER RUPTURE
     Dosage: 10 MG, QD
     Route: 048
     Dates: start: 20161103, end: 20161104
  5. TILDIEM [Suspect]
     Active Substance: DILTIAZEM HYDROCHLORIDE
     Dosage: 200 MG, QD
     Route: 048
  6. TRAMADOL. [Suspect]
     Active Substance: TRAMADOL
     Indication: BLISTER RUPTURE
     Dosage: UNK UNK, PRN
     Route: 048
     Dates: start: 20161103, end: 20161104

REACTIONS (1)
  - Stevens-Johnson syndrome [Unknown]

NARRATIVE: CASE EVENT DATE: 20161104
